FAERS Safety Report 18567640 (Version 4)
Quarter: 2021Q1

REPORT INFORMATION
  Report Type: Spontaneous
  Country: US (occurrence: US)
  Receive Date: 20201202
  Receipt Date: 20210216
  Transmission Date: 20210419
  Serious: Yes (Hospitalization, Other)
  Sender: FDA-Public Use
  Company Number: US-ASTELLAS-2020US042095

PATIENT
  Age: 9 Month
  Sex: Female

DRUGS (6)
  1. PROGRAF [Suspect]
     Active Substance: TACROLIMUS
     Dosage: UNK, UNKNOWN FREQ.
     Route: 048
  2. CIDOFOVIR. [Suspect]
     Active Substance: CIDOFOVIR
     Indication: ADENOVIRUS INFECTION
     Dosage: 1 MG/KG, ONCE DAILY BASED ON IDEAL BODY WEIGHT) FOR 12 DAYS (SIX DOSES)
     Route: 065
  3. PROGRAF [Suspect]
     Active Substance: TACROLIMUS
     Indication: LIVER TRANSPLANT
     Dosage: 0.1 MG TO 3 MG, EVERY 12 HOURS (TARGETED RANGE OF 10?12 NG/ML)
     Route: 048
     Dates: start: 20181224
  4. PREDNISONE. [Suspect]
     Active Substance: PREDNISONE
     Indication: LIVER TRANSPLANT
     Route: 065
  5. MYCOPHENOLATE [Suspect]
     Active Substance: MYCOPHENOLIC ACID
     Indication: LIVER TRANSPLANT
     Dosage: UNK UNK, UNKNOWN FREQ.
     Route: 065
  6. MYCOPHENOLATE [Suspect]
     Active Substance: MYCOPHENOLIC ACID
     Dosage: UNK UNK, UNKNOWN FREQ.
     Route: 065

REACTIONS (16)
  - Immunosuppressant drug level increased [Recovered/Resolved]
  - Tremor [Recovered/Resolved]
  - Acute kidney injury [Not Recovered/Not Resolved]
  - Viral sepsis [Recovered/Resolved]
  - Pneumatosis intestinalis [Recovered/Resolved]
  - Metabolic acidosis [Recovered/Resolved]
  - Cytomegalovirus viraemia [Recovered/Resolved]
  - Respiratory failure [Recovered/Resolved]
  - Cerebrovascular accident [Recovering/Resolving]
  - Cholangitis infective [Recovered/Resolved]
  - Epstein-Barr viraemia [Recovered/Resolved]
  - Chronic kidney disease [Not Recovered/Not Resolved]
  - Hypertension [Not Recovered/Not Resolved]
  - Irritability [Recovered/Resolved]
  - Adenovirus infection [Recovered/Resolved]
  - Liver abscess [Recovered/Resolved]

NARRATIVE: CASE EVENT DATE: 2019
